FAERS Safety Report 23206241 (Version 1)
Quarter: 2023Q4

REPORT INFORMATION
  Report Type: Spontaneous
  Country: CN (occurrence: CN)
  Receive Date: 20231120
  Receipt Date: 20231120
  Transmission Date: 20240110
  Serious: Yes (Death)
  Sender: FDA-Public Use
  Company Number: None

PATIENT
  Age: 23 Year
  Sex: Female

DRUGS (31)
  1. FULVESTRANT [Suspect]
     Active Substance: FULVESTRANT
     Indication: Invasive ductal breast carcinoma
     Dates: start: 201801, end: 201804
  2. EPIRUBICIN [Suspect]
     Active Substance: EPIRUBICIN
     Indication: Invasive ductal breast carcinoma
     Dates: start: 201402, end: 201406
  3. PACLITAXEL [Suspect]
     Active Substance: PACLITAXEL
     Indication: Invasive ductal breast carcinoma
     Dates: start: 201402, end: 201406
  4. PACLITAXEL [Suspect]
     Active Substance: PACLITAXEL
     Dosage: WEEKLY THERAPY
     Dates: start: 201904, end: 201911
  5. TAMOXIFEN [Suspect]
     Active Substance: TAMOXIFEN
     Indication: Invasive ductal breast carcinoma
     Dates: start: 201410, end: 201603
  6. ZOLEDRONIC ACID [Suspect]
     Active Substance: ZOLEDRONIC ACID
     Indication: Invasive ductal breast carcinoma
  7. ZOLEDRONIC ACID [Suspect]
     Active Substance: ZOLEDRONIC ACID
     Dates: start: 201604, end: 201712
  8. ZOLEDRONIC ACID [Suspect]
     Active Substance: ZOLEDRONIC ACID
     Dates: start: 201712, end: 201801
  9. ANASTROZOLE [Suspect]
     Active Substance: ANASTROZOLE
     Indication: Product used for unknown indication
     Dates: start: 201604, end: 201712
  10. EXEMESTANE [Suspect]
     Active Substance: EXEMESTANE
     Indication: Product used for unknown indication
     Dates: start: 201712, end: 201801
  11. PALBOCICLIB [Suspect]
     Active Substance: PALBOCICLIB
     Indication: Product used for unknown indication
     Dates: start: 201801, end: 201804
  12. DENOSUMAB [Suspect]
     Active Substance: DENOSUMAB
     Indication: Product used for unknown indication
     Dates: start: 201801, end: 201804
  13. DENOSUMAB [Suspect]
     Active Substance: DENOSUMAB
     Dates: start: 201807, end: 201812
  14. DENOSUMAB [Suspect]
     Active Substance: DENOSUMAB
     Dates: start: 201901, end: 201904
  15. DENOSUMAB [Suspect]
     Active Substance: DENOSUMAB
     Dates: start: 201904, end: 201911
  16. CAPECITABINE [Suspect]
     Active Substance: CAPECITABINE
     Indication: Product used for unknown indication
     Dates: start: 201804, end: 201807
  17. CYCLOPHOSPHAMIDE [Suspect]
     Active Substance: CYCLOPHOSPHAMIDE
     Indication: Chemotherapy
     Dates: start: 201402, end: 201406
  18. EVEROLIMUS [Suspect]
     Active Substance: EVEROLIMUS
     Indication: Product used for unknown indication
     Dates: start: 201807, end: 201812
  19. EVEROLIMUS [Suspect]
     Active Substance: EVEROLIMUS
     Dates: start: 201901, end: 201904
  20. LETROZOLE [Suspect]
     Active Substance: LETROZOLE
     Indication: Product used for unknown indication
     Dates: start: 201901, end: 201904
  21. TRASTUZUMAB DERUXTECAN [Suspect]
     Active Substance: TRASTUZUMAB DERUXTECAN
     Indication: Breast cancer
     Dates: start: 20200506, end: 20201119
  22. VINORELBINE [Suspect]
     Active Substance: VINORELBINE TARTRATE
     Indication: Product used for unknown indication
  23. DOXORUBICIN [Suspect]
     Active Substance: DOXORUBICIN
     Indication: Product used for unknown indication
     Dates: start: 201911, end: 201912
  24. GOSERELIN [Concomitant]
     Active Substance: GOSERELIN
     Indication: Chemotherapy
     Dates: start: 201402, end: 201406
  25. GOSERELIN [Concomitant]
     Active Substance: GOSERELIN
     Dates: start: 201410, end: 201603
  26. GOSERELIN [Concomitant]
     Active Substance: GOSERELIN
     Dates: start: 201604, end: 201712
  27. GOSERELIN [Concomitant]
     Active Substance: GOSERELIN
     Dates: start: 201712, end: 201801
  28. GOSERELIN [Concomitant]
     Active Substance: GOSERELIN
  29. GOSERELIN [Concomitant]
     Active Substance: GOSERELIN
  30. GIMERACIL\OTERACIL\TEGAFUR [Concomitant]
     Active Substance: GIMERACIL\OTERACIL POTASSIUM\TEGAFUR
     Indication: Product used for unknown indication
     Dates: start: 202001, end: 202002
  31. CATEQUENTINIB [Concomitant]
     Active Substance: CATEQUENTINIB
     Indication: Product used for unknown indication
     Dates: start: 202004

REACTIONS (3)
  - Vomiting [Fatal]
  - Fatigue [Fatal]
  - Drug ineffective [Fatal]
